FAERS Safety Report 4505097-6 (Version None)
Quarter: 2004Q4

REPORT INFORMATION
  Report Type: 
  Country: None (occurrence: None)
  Receive Date: 20041019
  Receipt Date: 20040914
  Transmission Date: 20050328
  Serious: No
  Sender: FDA-Public Use
  Company Number: MK200409-0110-1

PATIENT
  Sex: Female

DRUGS (1)
  1. NEUTROSPEC [Suspect]
     Indication: APPENDICITIS
     Dosage: 20 MCI, ONCE, IV
     Route: 042
     Dates: start: 20040911, end: 20040911

REACTIONS (3)
  - DYSPNOEA [None]
  - FLUSHING [None]
  - PRURITUS [None]
